FAERS Safety Report 10374130 (Version 2)
Quarter: 2014Q4

REPORT INFORMATION
  Report Type: Spontaneous
  Country: DE (occurrence: DE)
  Receive Date: 20140811
  Receipt Date: 20141027
  Transmission Date: 20150528
  Serious: Yes (Hospitalization)
  Sender: FDA-Public Use
  Company Number: GXKR2014DE002866

PATIENT
  Age: 6 Year
  Sex: Male
  Weight: 25 kg

DRUGS (1)
  1. CETIRIZIN HEXAL [Suspect]
     Active Substance: CETIRIZINE HYDROCHLORIDE
     Indication: ALLERGY TO ARTHROPOD STING
     Dosage: UNK UKN, ONCE/SINGLE
     Route: 048

REACTIONS (8)
  - Hallucination [Recovered/Resolved]
  - Depressed mood [Recovered/Resolved]
  - Dyspnoea exertional [Recovered/Resolved]
  - Listless [Recovered/Resolved]
  - Fatigue [Recovered/Resolved]
  - Aggression [Recovered/Resolved]
  - Decreased appetite [Recovered/Resolved]
  - Poor quality sleep [Recovered/Resolved]
